FAERS Safety Report 4665690-7 (Version None)
Quarter: 2005Q2

REPORT INFORMATION
  Report Type: 
  Country: None (occurrence: None)
  Receive Date: 20050519
  Receipt Date: 20050512
  Transmission Date: 20051028
  Serious: Yes (Other)
  Sender: FDA-Public Use
  Company Number: PHBS2005BR06718

PATIENT
  Age: 31 Year
  Sex: Female

DRUGS (1)
  1. ZELMAC [Suspect]
     Indication: CONSTIPATION
     Dosage: 6 MG, QD
     Route: 048
     Dates: start: 20050510, end: 20050510

REACTIONS (5)
  - DIARRHOEA [None]
  - EYE IRRITATION [None]
  - LARYNGEAL OEDEMA [None]
  - NASAL CONGESTION [None]
  - OROPHARYNGEAL SWELLING [None]
